FAERS Safety Report 10621873 (Version 1)
Quarter: 2014Q4

REPORT INFORMATION
  Report Type: Spontaneous
  Country: None (occurrence: None)
  Receive Date: 20141201
  Receipt Date: 20141201
  Transmission Date: 20150529
  Serious: No
  Sender: FDA-Public Use
  Company Number: None

PATIENT
  Age: 18 Year
  Sex: Female
  Weight: 49.9 kg

DRUGS (2)
  1. MIRENA [Suspect]
     Active Substance: LEVONORGESTREL
     Indication: MENSTRUAL CYCLE MANAGEMENT
     Dosage: 2 PILLS NIGHT BEFORE TAKEN BY MOUTH
     Route: 048
     Dates: start: 20130813, end: 20141127
  2. MIRENA [Suspect]
     Active Substance: LEVONORGESTREL
     Indication: CONTRACEPTION
     Dosage: 2 PILLS NIGHT BEFORE TAKEN BY MOUTH
     Route: 048
     Dates: start: 20130813, end: 20141127

REACTIONS (10)
  - Feeling of body temperature change [None]
  - Device breakage [None]
  - Abdominal pain [None]
  - Migraine [None]
  - Device dislocation [None]
  - Device expulsion [None]
  - Pallor [None]
  - Headache [None]
  - Vaginal haemorrhage [None]
  - Pelvic infection [None]

NARRATIVE: CASE EVENT DATE: 20141118
